FAERS Safety Report 9736485 (Version 1)
Quarter: 2013Q4

REPORT INFORMATION
  Report Type: Spontaneous
  Country: FR (occurrence: FR)
  Receive Date: 20131206
  Receipt Date: 20131206
  Transmission Date: 20140711
  Serious: Yes (Death)
  Sender: FDA-Public Use
  Company Number: FR-B.I. PHARMACEUTICALS,INC./RIDGEFIELD-2013-BI-40596FF

PATIENT
  Age: 90 Year
  Sex: Female

DRUGS (6)
  1. PRADAXA [Suspect]
     Indication: ATRIAL FIBRILLATION
     Dosage: 220 MG
     Route: 048
     Dates: start: 20130812, end: 20130902
  2. CORDARONE [Suspect]
     Dosage: 200 MG
     Route: 048
     Dates: start: 20130810
  3. DIFFU K [Concomitant]
     Dosage: 600 MG
  4. LASILIX [Concomitant]
     Dosage: 80 MG
  5. BISOPROLOL [Concomitant]
  6. PERINDOPRIL [Concomitant]

REACTIONS (4)
  - Gastrointestinal haemorrhage [Fatal]
  - Mouth haemorrhage [Fatal]
  - Skin haemorrhage [Fatal]
  - Haemorrhagic anaemia [Unknown]
